FAERS Safety Report 8886308 (Version 1)
Quarter: 2012Q4

REPORT INFORMATION
  Report Type: 
  Country: GB (occurrence: GB)
  Receive Date: 20121105
  Receipt Date: 20121105
  Transmission Date: 20130627
  Serious: Yes (Death, Hospitalization)
  Sender: FDA-Public Use
  Company Number: GB-COVIDIEN/TYCO HEALTHCARE/MALLINCKRODT-T201203750

PATIENT
  Age: 74 Year
  Sex: Female

DRUGS (2)
  1. OPTIRAY 300 [Suspect]
     Indication: COMPUTERISED TOMOGRAM
     Dosage: 100 ml, single, flow rate 3 ml/s
     Route: 042
     Dates: start: 20121018, end: 20121018
  2. WARFARIN [Concomitant]

REACTIONS (1)
  - Anaphylactic reaction [Fatal]
